FAERS Safety Report 9163238 (Version 1)
Quarter: 2013Q1

REPORT INFORMATION
  Report Type: Spontaneous
  Country: US (occurrence: US)
  Receive Date: 20130314
  Receipt Date: 20130314
  Transmission Date: 20140127
  Serious: Yes (Other)
  Sender: FDA-Public Use
  Company Number: US-ROCHE-1201234

PATIENT
  Age: 66 Year
  Sex: Female

DRUGS (2)
  1. BONIVA [Suspect]
     Indication: OSTEOPENIA
     Route: 065
  2. LEVOXYL [Concomitant]

REACTIONS (3)
  - Urinary tract infection [Not Recovered/Not Resolved]
  - Compression fracture [Unknown]
  - Fall [Unknown]
